FAERS Safety Report 17881822 (Version 2)
Quarter: 2020Q2

REPORT INFORMATION
  Report Type: Spontaneous
  Country: NL (occurrence: NL)
  Receive Date: 20200610
  Receipt Date: 20200612
  Transmission Date: 20200714
  Serious: Yes (Other)
  Sender: FDA-Public Use
  Company Number: NL-ALLERGAN-2022209US

PATIENT
  Sex: Male

DRUGS (1)
  1. IRON DEXTRAN UNK [Suspect]
     Active Substance: IRON DEXTRAN
     Indication: EXPOSURE DURING PREGNANCY
     Route: 064

REACTIONS (1)
  - Bradycardia foetal [Recovered/Resolved]
